FAERS Safety Report 24547863 (Version 1)
Quarter: 2024Q4

REPORT INFORMATION
  Report Type: Spontaneous
  Country: IT (occurrence: IT)
  Receive Date: 20241025
  Receipt Date: 20241025
  Transmission Date: 20250115
  Serious: Yes (Other)
  Sender: CELLTRION
  Company Number: IT-AMGEN-ITASP2024083029

PATIENT

DRUGS (1)
  1. ADALIMUMAB [Suspect]
     Active Substance: ADALIMUMAB
     Indication: Hidradenitis
     Dosage: DOSAGE1: UNIT=NOT AVAILABLE
     Route: 065

REACTIONS (2)
  - Hidradenitis [Recovering/Resolving]
  - Therapy non-responder [Unknown]
